FAERS Safety Report 10733950 (Version 1)
Quarter: 2015Q1

REPORT INFORMATION
  Report Type: Spontaneous
  Country: US (occurrence: US)
  Receive Date: 20150123
  Receipt Date: 20150123
  Transmission Date: 20150721
  Serious: No
  Sender: FDA-Public Use
  Company Number: US-GLAXOSMITHKLINE-US2014041251

PATIENT
  Age: 69 Year
  Sex: Female

DRUGS (1)
  1. NICODERM CQ [Suspect]
     Active Substance: NICOTINE
     Indication: SMOKING CESSATION THERAPY
     Dosage: 14 MG, UNK
     Route: 062
     Dates: start: 2014, end: 20141223

REACTIONS (5)
  - Application site swelling [Not Recovered/Not Resolved]
  - Application site urticaria [Recovered/Resolved]
  - Application site pruritus [Not Recovered/Not Resolved]
  - Application site pain [Recovered/Resolved]
  - Application site erythema [Not Recovered/Not Resolved]

NARRATIVE: CASE EVENT DATE: 2014
